FAERS Safety Report 22268490 (Version 6)
Quarter: 2024Q3

REPORT INFORMATION
  Report Type: Spontaneous
  Country: US (occurrence: US)
  Receive Date: 20230430
  Receipt Date: 20240716
  Transmission Date: 20241016
  Serious: Yes (Other)
  Sender: SANOFI AVENTIS
  Company Number: US-SA-SAC20230426001088

PATIENT
  Age: 63 Year
  Sex: Male
  Weight: 91.7 kg

DRUGS (4)
  1. CAPRELSA [Suspect]
     Active Substance: VANDETANIB
     Indication: Thyroid cancer
     Dosage: 200 MG, QD
     Route: 048
     Dates: start: 20200323
  2. CAPRELSA [Suspect]
     Active Substance: VANDETANIB
     Indication: Mixed hepatocellular cholangiocarcinoma
     Dosage: 100 MG
  3. LEVOTHYROXINE [Concomitant]
     Active Substance: LEVOTHYROXINE\LEVOTHYROXINE SODIUM
     Dosage: 150MG, TO 175MG ALTERNATING BACK AND FORTH
  4. KEPPRA [Concomitant]
     Active Substance: LEVETIRACETAM
     Dosage: 500 MG, BID

REACTIONS (10)
  - Seizure [Unknown]
  - Blood pressure fluctuation [Unknown]
  - Oral herpes [Unknown]
  - Hepatic mass [Unknown]
  - Blood calcium increased [Unknown]
  - Hypoparathyroidism [Unknown]
  - Prostatic disorder [Unknown]
  - Lip blister [Unknown]
  - Fatigue [Unknown]
  - Photosensitivity reaction [Unknown]

NARRATIVE: CASE EVENT DATE: 20240411
